FAERS Safety Report 11376184 (Version 1)
Quarter: 2015Q3

REPORT INFORMATION
  Report Type: Spontaneous
  Country: US (occurrence: US)
  Receive Date: 20150813
  Receipt Date: 20150813
  Transmission Date: 20151125
  Serious: Yes (Hospitalization)
  Sender: FDA-Public Use
  Company Number: US-PFIZER INC-2015256025

PATIENT
  Age: 68 Year
  Sex: Male
  Weight: 84.17 kg

DRUGS (2)
  1. SIMVASTATIN. [Concomitant]
     Active Substance: SIMVASTATIN
     Indication: BLOOD CHOLESTEROL INCREASED
     Dosage: UNK
  2. XALKORI [Suspect]
     Active Substance: CRIZOTINIB
     Indication: ADRENAL GLAND CANCER METASTATIC
     Dosage: 250 MG, 2X/DAY

REACTIONS (4)
  - Dyspnoea [Unknown]
  - Adrenal gland cancer metastatic [Unknown]
  - Disease progression [Unknown]
  - Product use issue [Unknown]
